FAERS Safety Report 8184723-7 (Version None)
Quarter: 2012Q1

REPORT INFORMATION
  Report Type: 
  Country: None (occurrence: None)
  Receive Date: 20120305
  Receipt Date: 20120305
  Transmission Date: 20120608
  Serious: Yes (Other)
  Sender: FDA-Public Use
  Company Number: None

PATIENT
  Age: 33 Year
  Sex: Female
  Weight: 48 kg

DRUGS (1)
  1. PAXIL [Suspect]
     Indication: DEPRESSION
     Route: 048
     Dates: start: 19950810, end: 20101111

REACTIONS (6)
  - HYPOPHAGIA [None]
  - DRUG DEPENDENCE [None]
  - ANHEDONIA [None]
  - ANORGASMIA [None]
  - INSOMNIA [None]
  - SEXUAL DYSFUNCTION [None]
